FAERS Safety Report 24743497 (Version 1)
Quarter: 2024Q4

REPORT INFORMATION
  Report Type: Spontaneous
  Country: CN (occurrence: CN)
  Receive Date: 20241217
  Receipt Date: 20241217
  Transmission Date: 20250115
  Serious: Yes (Hospitalization, Other)
  Sender: BAXTER
  Company Number: None

PATIENT
  Age: 1 Year
  Sex: Female
  Weight: 9.9 kg

DRUGS (6)
  1. CYCLOPHOSPHAMIDE [Suspect]
     Active Substance: CYCLOPHOSPHAMIDE
     Indication: Renal cancer
     Dosage: 0.43 G, ONE TIME IN ONE DAY, DILUTED WITH 100 ML OF GLUCOSE AND SODIUM CHLORIDE
     Route: 041
     Dates: start: 20240712, end: 20240713
  2. DEXTROSE\SODIUM CHLORIDE [Suspect]
     Active Substance: DEXTROSE\SODIUM CHLORIDE
     Indication: Medication dilution
     Dosage: 100 ML, ONE TIME IN ONE DAY
     Route: 041
     Dates: start: 20240712, end: 20240713
  3. SODIUM CHLORIDE [Suspect]
     Active Substance: SODIUM CHLORIDE
     Indication: Medication dilution
     Dosage: 100 ML, ONE TIME IN ONE DAY, USED TO DILUTE 9 MG OF EPIRUBICIN HYDROCHLORIDE (0.9% INJECTION)
     Route: 041
     Dates: start: 20240712, end: 20240714
  4. SODIUM CHLORIDE [Suspect]
     Active Substance: SODIUM CHLORIDE
     Dosage: 50 ML, ONE TIME IN ONE DAY, USED TO DILUTE 1 MG OF VINDESINE SULFATE (0.9% INJECTION)
     Route: 041
     Dates: start: 20240712, end: 20240712
  5. EPIRUBICIN [Suspect]
     Active Substance: EPIRUBICIN
     Indication: Renal cancer
     Dosage: 9 MG, ONE TIME IN ONE DAY, DILUTED WITH 100 ML OF SODIUM CHLORIDE
     Route: 041
     Dates: start: 20240712, end: 20240714
  6. VINDESINE SULFATE [Suspect]
     Active Substance: VINDESINE SULFATE
     Indication: Renal cancer
     Dosage: 1 MG, ONE TIME IN ONE DAY, DILUTED WITH 50 ML OF SODIUM CHLORIDE
     Route: 041
     Dates: start: 20240712, end: 20240712

REACTIONS (1)
  - Myelosuppression [Recovering/Resolving]

NARRATIVE: CASE EVENT DATE: 20240720
